FAERS Safety Report 16601704 (Version 4)
Quarter: 2019Q3

REPORT INFORMATION
  Report Type: Report from Study
  Country: US (occurrence: US)
  Receive Date: 20190719
  Receipt Date: 20190816
  Transmission Date: 20191004
  Serious: Yes (Other)
  Sender: FDA-Public Use
  Company Number: US-TEVA-2019-US-1079729

PATIENT
  Sex: Female

DRUGS (2)
  1. CLARAVIS [Suspect]
     Active Substance: ISOTRETINOIN
     Dosage: 30 MILLIGRAM DAILY;
     Route: 065
     Dates: start: 20190620, end: 20190719
  2. TRI-LO-SPRINTEC [Suspect]
     Active Substance: ETHINYL ESTRADIOL\NORGESTIMATE
     Route: 065

REACTIONS (1)
  - Unintended pregnancy [Unknown]
